FAERS Safety Report 5920779-7 (Version None)
Quarter: 2008Q4

REPORT INFORMATION
  Report Type: 
  Country: None (occurrence: None)
  Receive Date: 20081016
  Receipt Date: 20071017
  Transmission Date: 20090506
  Serious: Yes (Death)
  Sender: FDA-Public Use
  Company Number: JP-ASTRAZENECA-2006AP05837

PATIENT
  Age: 75 Year
  Sex: Male
  Weight: 50 kg

DRUGS (6)
  1. MEROPEN [Suspect]
     Indication: SEPSIS
     Route: 041
     Dates: start: 20060619, end: 20060620
  2. CARBENIN [Suspect]
     Indication: SEPSIS
     Route: 041
     Dates: start: 20060703, end: 20060710
  3. NEUART [Suspect]
     Indication: DISSEMINATED INTRAVASCULAR COAGULATION
     Route: 041
     Dates: start: 20060811, end: 20060812
  4. PENTOCILLIN [Concomitant]
     Indication: PNEUMONIA
     Route: 041
     Dates: start: 20060727, end: 20060807
  5. MAXIPIME [Concomitant]
     Indication: CHOLANGITIS
     Route: 041
     Dates: start: 20060809, end: 20060814
  6. ELASPOL [Concomitant]
     Indication: LUNG DISORDER
     Route: 042
     Dates: start: 20060812, end: 20060826

REACTIONS (4)
  - CHOLANGITIS [None]
  - HEPATIC FAILURE [None]
  - HEPATITIS [None]
  - RASH [None]
